FAERS Safety Report 8480784-6 (Version None)
Quarter: 2012Q2

REPORT INFORMATION
  Report Type: 
  Country: None (occurrence: None)
  Receive Date: 20120626
  Receipt Date: 20120626
  Transmission Date: 20120825
  Serious: Yes (Congenital Anomaly)
  Sender: FDA-Public Use
  Company Number: None

PATIENT
  Sex: Female

DRUGS (2)
  1. ZIPRASIDONE HCL [Suspect]
     Indication: SCHIZOAFFECTIVE DISORDER
     Dosage: 80 MG BID PO
     Route: 048
  2. OLANZAPINE [Suspect]
     Dosage: 10 MG TID PO
     Route: 048

REACTIONS (3)
  - FOETAL DEATH [None]
  - DIABETIC KETOACIDOSIS [None]
  - MATERNAL EXPOSURE DURING PREGNANCY [None]
